FAERS Safety Report 4818366-7 (Version None)
Quarter: 2005Q4

REPORT INFORMATION
  Report Type: 
  Country: None (occurrence: None)
  Receive Date: 20051031
  Receipt Date: 20051019
  Transmission Date: 20060501
  Serious: Yes (Death)
  Sender: FDA-Public Use
  Company Number: 05101902

PATIENT
  Age: 63 Year
  Sex: Male
  Weight: 102.9665 kg

DRUGS (3)
  1. ALFERON N INJECTION, 5 MILLION IU/ML [Suspect]
     Indication: ENCEPHALITIS
     Dosage: 3 MILLION IU (1 DOSE, 0.6ML) OF ALFERON N INJECTION OR PLACEBO ADMINISTRATION BY IV AFTER RANDOMIZAT
     Route: 042
     Dates: start: 20050925, end: 20051001
  2. ALFERON N INJECTION, 5 MILLION IU/ML [Suspect]
     Indication: WEST NILE VIRAL INFECTION
     Dosage: 3 MILLION IU (1 DOSE, 0.6ML) OF ALFERON N INJECTION OR PLACEBO ADMINISTRATION BY IV AFTER RANDOMIZAT
     Route: 042
     Dates: start: 20050925, end: 20051001
  3. ALFERON N INJECTION PLACEBO [Suspect]

REACTIONS (6)
  - BRAIN DEATH [None]
  - BRAIN OEDEMA [None]
  - CARDIO-RESPIRATORY ARREST [None]
  - COMA [None]
  - NERVOUS SYSTEM DISORDER [None]
  - PARALYSIS FLACCID [None]
